FAERS Safety Report 24130293 (Version 1)
Quarter: 2024Q3

REPORT INFORMATION
  Report Type: Spontaneous
  Country: BE (occurrence: BE)
  Receive Date: 20240724
  Receipt Date: 20240724
  Transmission Date: 20241016
  Serious: Yes (Death, Hospitalization)
  Sender: SANDOZ
  Company Number: BE-STADA-01274665

PATIENT
  Age: 55 Year
  Sex: Male

DRUGS (1)
  1. TERIFLUNOMIDE [Suspect]
     Active Substance: TERIFLUNOMIDE
     Indication: Relapsing-remitting multiple sclerosis
     Dosage: UNK
     Route: 065
     Dates: start: 2014

REACTIONS (3)
  - Gastrointestinal haemorrhage [Fatal]
  - Bronchopulmonary aspergillosis [Fatal]
  - Aspergilloma [Fatal]
